FAERS Safety Report 17886356 (Version 2)
Quarter: 2020Q2

REPORT INFORMATION
  Report Type: Spontaneous
  Country: US (occurrence: US)
  Receive Date: 20200611
  Receipt Date: 20200617
  Transmission Date: 20200714
  Serious: Yes (Other)
  Sender: FDA-Public Use
  Company Number: ALC2020US004184

PATIENT
  Age: 85 Year
  Sex: Male

DRUGS (1)
  1. ICAPS AREDS 2 [Suspect]
     Active Substance: MINERALS\VITAMINS
     Indication: PRODUCT USED FOR UNKNOWN INDICATION
     Dosage: 2 DF, QD
     Route: 065

REACTIONS (5)
  - Product size issue [Recovered/Resolved]
  - Choking [Recovered/Resolved]
  - Foreign body in throat [Recovered/Resolved]
  - Product quality issue [Recovered/Resolved]
  - Vomiting [Recovered/Resolved]
